FAERS Safety Report 10512384 (Version 1)
Quarter: 2014Q4

REPORT INFORMATION
  Report Type: Spontaneous
  Country: FR (occurrence: FR)
  Receive Date: 20141010
  Receipt Date: 20141010
  Transmission Date: 20150528
  Serious: Yes (Hospitalization)
  Sender: FDA-Public Use
  Company Number: FR-009507513-1410FRA003915

PATIENT
  Age: 14 Year
  Sex: Male

DRUGS (10)
  1. IFOSFAMIDE. [Suspect]
     Active Substance: IFOSFAMIDE
     Indication: EWING^S SARCOMA
     Dosage: 2G/50MG EG, FIRST AND SECOND CURE AT 5PM FOR 3 HOURS
     Route: 042
     Dates: start: 20140626, end: 20140627
  2. PARACETAMOL BRAUN [Suspect]
     Active Substance: ACETAMINOPHEN
     Indication: PAIN
     Dosage: UNK
     Route: 042
     Dates: start: 20140627, end: 20140627
  3. UROMITEXAN [Suspect]
     Active Substance: MESNA
     Indication: EWING^S SARCOMA
     Dosage: 5G/24H, FIRST AND SECOND CURE.
     Route: 042
     Dates: start: 20140626, end: 20140627
  4. NALBUPHINE HYDROCHLORIDE. [Suspect]
     Active Substance: NALBUPHINE HYDROCHLORIDE
     Indication: PAIN
     Dosage: UNK
     Route: 042
     Dates: start: 20140627, end: 20140628
  5. PLITICAN [Suspect]
     Active Substance: ALIZAPRIDE HYDROCHLORIDE
     Indication: NAUSEA
     Dosage: UNK
     Route: 042
     Dates: start: 20140626, end: 20140627
  6. DOXORUBICIN ACCORD [Suspect]
     Active Substance: DOXORUBICIN HYDROCHLORIDE
     Indication: EWING^S SARCOMA
     Dosage: 200 MG/100ML FIRST CURE. 200 MG/100ML SECOND CURE FROM 8 PM FOR 4 HOURS.
     Route: 042
     Dates: start: 20140626, end: 20140628
  7. VINCRISTINE SULFATE. [Suspect]
     Active Substance: VINCRISTINE SULFATE
     Indication: EWING^S SARCOMA
     Dosage: 2MG/2ML, FIRST CURE.
     Route: 042
     Dates: start: 20140626, end: 20140626
  8. ZOPHREN (ONDANSETRON HYDROCHLORIDE) [Suspect]
     Active Substance: ONDANSETRON HYDROCHLORIDE
     Indication: NAUSEA
     Dosage: UNK
     Route: 042
     Dates: start: 20140626, end: 20140628
  9. EMEND [Suspect]
     Active Substance: APREPITANT
     Indication: NAUSEA
     Dosage: UNK
     Route: 048
     Dates: start: 20140626, end: 20140628
  10. ETOPOPHOS [Suspect]
     Active Substance: ETOPOSIDE PHOSPHATE
     Indication: EWING^S SARCOMA
     Dosage: 100 MG. FIRST AND SECOND CURE. SECOND CURE AT 4 PM FOR 1 HOUR.
     Route: 042
     Dates: start: 20140626, end: 20140628

REACTIONS (4)
  - Somnolence [Recovered/Resolved]
  - Decreased activity [None]
  - Tachycardia [None]
  - Somnolence [None]

NARRATIVE: CASE EVENT DATE: 20140627
